FAERS Safety Report 15546717 (Version 1)
Quarter: 2018Q4

REPORT INFORMATION
  Report Type: Report from Study
  Country: ES (occurrence: ES)
  Receive Date: 20181024
  Receipt Date: 20181024
  Transmission Date: 20190205
  Serious: Yes (Hospitalization, Other)
  Sender: FDA-Public Use
  Company Number: ES-TEVA-2018-ES-967965

PATIENT
  Age: 90 Year
  Sex: Female

DRUGS (11)
  1. BROMAZEPAM (510A) [Concomitant]
     Dosage: 1.5 MILLIGRAM DAILY;
     Route: 048
  2. CIPROFLOXACINO (2049A) [Concomitant]
     Active Substance: CIPROFLOXACIN
     Indication: URINARY TRACT INFECTION
     Route: 048
  3. EUTIROX 50 [Concomitant]
     Dosage: 50 MILLIGRAM DAILY; 1/BASE
     Route: 048
  4. CLOTRIMAZOL 20MG/G CREMA VAGINAL [Concomitant]
     Route: 067
  5. OMEPRAZOL (2141A) [Concomitant]
     Active Substance: OMEPRAZOLE
     Route: 048
  6. ENALAPRIL/HIDROCLOROTIAZIDA 20/12.5 [Suspect]
     Active Substance: ENALAPRIL\HYDROCHLOROTHIAZIDE
     Indication: HYPERTENSION
     Dosage: 1C/12H
     Route: 048
     Dates: end: 20171122
  7. MIRTAZAPINA (2704A) [Suspect]
     Active Substance: MIRTAZAPINE
     Indication: DEPRESSION
     Dosage: 15 MILLIGRAM DAILY;
     Route: 048
     Dates: end: 20171122
  8. NOLOTIL [METAMIZOLE MAGNESIUM] [Concomitant]
     Active Substance: METAMIZOLE MAGNESIUM
     Route: 048
  9. SERTRALINA (2537A) [Suspect]
     Active Substance: SERTRALINE HYDROCHLORIDE
     Indication: DEPRESSION
     Dosage: 50 MILLIGRAM DAILY; 1-0-0
     Route: 048
     Dates: end: 20171122
  10. TRAMADOL + PARACETAMOL [Concomitant]
     Active Substance: ACETAMINOPHEN\TRAMADOL
     Dosage: 1/12H
     Route: 048
  11. FORADIL [Concomitant]
     Active Substance: FORMOTEROL FUMARATE
     Route: 055

REACTIONS (1)
  - Hyponatraemia [Recovered/Resolved]

NARRATIVE: CASE EVENT DATE: 2017
